FAERS Safety Report 8671418 (Version 3)
Quarter: 2012Q4

REPORT INFORMATION
  Report Type: 
  Country: JP (occurrence: JP)
  Receive Date: 20120718
  Receipt Date: 20120919
  Transmission Date: 20130627
  Serious: Yes (Hospitalization)
  Sender: FDA-Public Use
  Company Number: JP-GLAXOSMITHKLINE-B0814546A

PATIENT
  Age: 51 Year
  Sex: Female

DRUGS (4)
  1. PAXIL [Suspect]
     Indication: DEPRESSION
     Dosage: 30MG Per day
     Route: 048
  2. ZYLORIC [Concomitant]
     Dosage: 100MG Per day
     Route: 048
  3. CALTAN [Concomitant]
     Dosage: 500MG Three times per day
     Route: 048
  4. SORBITOL [Concomitant]
     Dosage: 1IUAX Three times per day
     Route: 048

REACTIONS (3)
  - Convulsion [Recovered/Resolved]
  - Serotonin syndrome [Recovered/Resolved]
  - Restlessness [Recovered/Resolved]
